FAERS Safety Report 6821202-0 (Version None)
Quarter: 2010Q3

REPORT INFORMATION
  Report Type: 
  Country: None (occurrence: None)
  Receive Date: 20100707
  Receipt Date: 20080827
  Transmission Date: 20110219
  Serious: No
  Sender: FDA-Public Use
  Company Number: US-PFIZER INC-2008015539

PATIENT
  Age: 16 Year
  Sex: Female
  Weight: 68.04 kg

DRUGS (5)
  1. ZOLOFT [Suspect]
     Indication: DEPRESSION
  2. SEROQUEL [Concomitant]
  3. LORATADINE [Concomitant]
  4. NEXIUM [Concomitant]
  5. ABILIFY [Concomitant]

REACTIONS (1)
  - DRUG SCREEN FALSE POSITIVE [None]
